FAERS Safety Report 6810837-7 (Version None)
Quarter: 2010Q2

REPORT INFORMATION
  Report Type: 
  Country: None (occurrence: None)
  Receive Date: 20100630
  Receipt Date: 20080225
  Transmission Date: 20101027
  Serious: No
  Sender: FDA-Public Use
  Company Number: US-PFIZER INC-2008019475

PATIENT

DRUGS (2)
  1. GLYBURIDE [Suspect]
     Indication: DIABETES MELLITUS
  2. GLEEVEC [Concomitant]
     Dates: start: 20040624, end: 20080131

REACTIONS (1)
  - HYPOGLYCAEMIA [None]
